FAERS Safety Report 5570674-0 (Version None)
Quarter: 2007Q4

REPORT INFORMATION
  Report Type: 
  Country: None (occurrence: None)
  Receive Date: 20071221
  Receipt Date: 20071205
  Transmission Date: 20080405
  Serious: Yes (Life-Threatening, Other)
  Sender: FDA-Public Use
  Company Number: US-JNJFOC-20071204200

PATIENT
  Age: 31 Year
  Sex: Female

DRUGS (3)
  1. ULTRAM [Suspect]
     Indication: DRUG USE FOR UNKNOWN INDICATION
     Route: 065
  2. CLONOPIN [Concomitant]
     Indication: PANIC ATTACK
     Route: 065
  3. ELAVIL [Concomitant]
     Dosage: AS NEEDED
     Route: 065

REACTIONS (5)
  - CARDIAC ARREST [None]
  - DYSPNOEA [None]
  - NAUSEA [None]
  - PANIC ATTACK [None]
  - VOMITING [None]
